FAERS Safety Report 18185803 (Version 2)
Quarter: 2022Q4

REPORT INFORMATION
  Report Type: Spontaneous
  Country: US (occurrence: US)
  Receive Date: 20200824
  Receipt Date: 20221013
  Transmission Date: 20230113
  Serious: No
  Sender: FDA-Public Use
  Company Number: US-CELLTRION INC.-2020US023420

PATIENT

DRUGS (1)
  1. INFLECTRA [Suspect]
     Active Substance: INFLIXIMAB-DYYB
     Indication: Psoriatic arthropathy
     Dosage: UNSURE, INFUSION INTRAVENOUSLY EVERY 2 MONTHS
     Route: 042
     Dates: start: 2020

REACTIONS (4)
  - Unevaluable event [Not Recovered/Not Resolved]
  - Product temperature excursion issue [Unknown]
  - Product availability issue [Not Recovered/Not Resolved]
  - Product dose omission issue [Not Recovered/Not Resolved]

NARRATIVE: CASE EVENT DATE: 20200101
